FAERS Safety Report 12290134 (Version 2)
Quarter: 2016Q2

REPORT INFORMATION
  Report Type: Spontaneous
  Country: US (occurrence: US)
  Receive Date: 20160421
  Receipt Date: 20160519
  Transmission Date: 20160815
  Serious: Yes (Other)
  Sender: FDA-Public Use
  Company Number: US-GLAXOSMITHKLINE-US2016055186

PATIENT
  Age: 74 Year
  Sex: Female

DRUGS (15)
  1. VITAMIN B12 [Concomitant]
     Active Substance: CYANOCOBALAMIN
  2. ADVAIR DISKUS [Suspect]
     Active Substance: FLUTICASONE PROPIONATE\SALMETEROL XINAFOATE
     Indication: CHRONIC OBSTRUCTIVE PULMONARY DISEASE
     Dosage: 1 PUFF(S), BID
     Route: 055
     Dates: start: 2000
  3. ADVAIR DISKUS [Suspect]
     Active Substance: FLUTICASONE PROPIONATE\SALMETEROL XINAFOATE
     Indication: SARCOIDOSIS
  4. ALBUTEROL NEBULIZER [Concomitant]
     Active Substance: ALBUTEROL
  5. CALCIUM [Concomitant]
     Active Substance: CALCIUM
  6. COLESTIPOL [Concomitant]
     Active Substance: COLESTIPOL
  7. AZILECT [Concomitant]
     Active Substance: RASAGILINE MESYLATE
  8. PRIMIDONE. [Concomitant]
     Active Substance: PRIMIDONE
  9. PRILOSEC [Concomitant]
     Active Substance: OMEPRAZOLE MAGNESIUM
  10. SINGULAIR [Concomitant]
     Active Substance: MONTELUKAST SODIUM
  11. ATENOLOL. [Concomitant]
     Active Substance: ATENOLOL
  12. PREVACID [Concomitant]
     Active Substance: LANSOPRAZOLE
  13. VITAMIN D3 [Concomitant]
     Active Substance: CHOLECALCIFEROL
  14. CYMBALTA [Concomitant]
     Active Substance: DULOXETINE HYDROCHLORIDE
  15. LYRICA [Concomitant]
     Active Substance: PREGABALIN

REACTIONS (4)
  - Pneumonia [Recovering/Resolving]
  - Ankle fracture [Recovered/Resolved]
  - Fall [Unknown]
  - Streptococcal infection [Recovering/Resolving]

NARRATIVE: CASE EVENT DATE: 20160203
